FAERS Safety Report 8624318-1 (Version None)
Quarter: 2012Q3

REPORT INFORMATION
  Report Type: 
  Country: None (occurrence: None)
  Receive Date: 20120827
  Receipt Date: 20120814
  Transmission Date: 20120928
  Serious: Yes (Hospitalization)
  Sender: FDA-Public Use
  Company Number: US-ACTELION-A-NJ2012-70232

PATIENT
  Age: 40 Year
  Sex: Male

DRUGS (3)
  1. LETAIRIS [Concomitant]
  2. ADCIRCA [Concomitant]
  3. EPOPROSTENOL SODIUM [Suspect]
     Indication: PULMONARY ARTERIAL HYPERTENSION
     Dosage: 12 NG/KG, PER MIN
     Route: 041
     Dates: start: 20120604

REACTIONS (6)
  - COUGH [None]
  - PYREXIA [None]
  - VOMITING [None]
  - PNEUMONIA [None]
  - PLEURISY [None]
  - SKIN IRRITATION [None]
